FAERS Safety Report 9344056 (Version 1)
Quarter: 2013Q2

REPORT INFORMATION
  Report Type: Report from Study
  Country: US (occurrence: US)
  Receive Date: 20130612
  Receipt Date: 20130612
  Transmission Date: 20140414
  Serious: Yes (Other)
  Sender: FDA-Public Use
  Company Number: US-BRISTOL-MYERS SQUIBB COMPANY-18984617

PATIENT
  Age: 61 Year
  Sex: Female
  Weight: 120 kg

DRUGS (3)
  1. IPILIMUMAB [Suspect]
     Indication: MALIGNANT MELANOMA
     Dosage: LAST:01MAR2013
     Route: 042
     Dates: start: 20121228
  2. ALREX [Concomitant]
  3. SYNTHROID [Concomitant]

REACTIONS (1)
  - Neutrophil count decreased [Not Recovered/Not Resolved]
